FAERS Safety Report 9173302 (Version 1)
Quarter: 2013Q1

REPORT INFORMATION
  Report Type: Spontaneous
  Country: AU (occurrence: None)
  Receive Date: 20130314
  Receipt Date: 20130314
  Transmission Date: 20140127
  Serious: Yes (Hospitalization)
  Sender: FDA-Public Use
  Company Number: IMP_06618_2013

PATIENT
  Age: 65 Year
  Sex: Male

DRUGS (7)
  1. METFORMIN (METFORMIN) [Suspect]
     Indication: TYPE 2 DIABETES MELLITUS
     Dosage: (DF)
  2. INSULIN [Concomitant]
  3. ATENOLOL [Concomitant]
  4. TRANDOLAPRIL [Concomitant]
  5. FUROSEMIDE [Concomitant]
  6. SPIRONOLACTONE [Concomitant]
  7. WARFARIN [Concomitant]

REACTIONS (17)
  - Dyspnoea [None]
  - Lethargy [None]
  - Melaena [None]
  - Nodal rhythm [None]
  - Respiratory rate increased [None]
  - Atrioventricular block complete [None]
  - Cardiac arrest [None]
  - Lactic acidosis [None]
  - Hyperkalaemia [None]
  - Hypoglycaemia [None]
  - Anaemia [None]
  - Coagulopathy [None]
  - International normalised ratio increased [None]
  - Activated partial thromboplastin time prolonged [None]
  - Renal failure acute [None]
  - Continuous haemodiafiltration [None]
  - Body temperature decreased [None]
